FAERS Safety Report 20508709 (Version 1)
Quarter: 2022Q1

REPORT INFORMATION
  Report Type: Spontaneous
  Country: US (occurrence: US)
  Receive Date: 20220223
  Receipt Date: 20220223
  Transmission Date: 20220423
  Serious: No
  Sender: FDA-Public Use
  Company Number: US-LUNDBECK-DKLU3044904

PATIENT
  Age: 45 Year
  Sex: Male

DRUGS (2)
  1. ONFI [Suspect]
     Active Substance: CLOBAZAM
     Indication: Lennox-Gastaut syndrome
     Route: 048
     Dates: start: 20181116
  2. ONFI [Suspect]
     Active Substance: CLOBAZAM
     Route: 048

REACTIONS (1)
  - Product communication issue [Unknown]
